FAERS Safety Report 7251866-1 (Version None)
Quarter: 2011Q1

REPORT INFORMATION
  Report Type: 
  Country: None (occurrence: None)
  Receive Date: 20110128
  Receipt Date: 20100208
  Transmission Date: 20110831
  Serious: No
  Sender: FDA-Public Use
  Company Number: US-ABBOTT-09P-163-0610164-00

PATIENT
  Sex: Female
  Weight: 88.984 kg

DRUGS (22)
  1. HUMIRA [Suspect]
     Indication: RHEUMATOID ARTHRITIS
     Route: 058
  2. PREMARIN [Concomitant]
     Indication: HYSTERECTOMY
  3. ZYRTEC-D 12 HOUR [Concomitant]
     Indication: PRODUCT USED FOR UNKNOWN INDICATION
     Dosage: PRN OR DAILY WHEN REMEMBERS
  4. PREVACID [Concomitant]
     Indication: GASTROOESOPHAGEAL REFLUX DISEASE
  5. CYMBALTA [Concomitant]
     Indication: DEPRESSION
  6. MULTI-VITAMIN [Concomitant]
     Indication: PRODUCT USED FOR UNKNOWN INDICATION
     Route: 048
  7. LISINOPRIL [Concomitant]
     Indication: PRODUCT USED FOR UNKNOWN INDICATION
  8. FOLIC ACID [Concomitant]
     Indication: PRODUCT USED FOR UNKNOWN INDICATION
  9. CALCIUM [Concomitant]
     Indication: PRODUCT USED FOR UNKNOWN INDICATION
  10. TEMAZEPAM [Concomitant]
     Indication: INSOMNIA
     Dosage: TAKES USUALLY 1 PILL DAILY, BUT IF NEEDED WILL TAKE 2 PILLS DAILY QHS
     Route: 048
  11. PROAIR HFA [Concomitant]
     Indication: RESPIRATORY DISORDER
  12. METHOPREDNISOLONE [Concomitant]
     Indication: RHEUMATOID ARTHRITIS
  13. LYRICA [Concomitant]
     Indication: FIBROMYALGIA
  14. RHINOCORT [Concomitant]
     Indication: PRODUCT USED FOR UNKNOWN INDICATION
  15. HUMIRA [Suspect]
     Route: 058
  16. PREMARIN [Concomitant]
     Indication: OESTROGEN REPLACEMENT THERAPY
  17. TOPAMAX [Suspect]
     Indication: MIGRAINE
     Dosage: MD CUT BACK ON FULL DOSE TO ABOUT HALF THE DOSE
     Dates: start: 20090101
  18. ZOCOR [Concomitant]
     Indication: PRODUCT USED FOR UNKNOWN INDICATION
  19. TOPAMAX [Suspect]
     Dosage: FULL UNKNOWN DOSE
     Dates: end: 20090101
  20. CELEBREX [Concomitant]
     Indication: RHEUMATOID ARTHRITIS
  21. PROSED/DS [Concomitant]
     Indication: BLADDER PAIN
  22. METHOTREXATE [Concomitant]
     Indication: RHEUMATOID ARTHRITIS
     Dosage: 2.5MG FORM STRENGTH
     Route: 048

REACTIONS (7)
  - STAPHYLOCOCCAL INFECTION [None]
  - PAIN OF SKIN [None]
  - MIGRAINE [None]
  - HAEMORRHAGE [None]
  - MOBILITY DECREASED [None]
  - SKIN LESION [None]
  - PAIN [None]
